FAERS Safety Report 6589256-7 (Version None)
Quarter: 2010Q1

REPORT INFORMATION
  Report Type: 
  Country: None (occurrence: None)
  Receive Date: 20100218
  Receipt Date: 20100208
  Transmission Date: 20100710
  Serious: Yes (Hospitalization)
  Sender: FDA-Public Use
  Company Number: CA-GENENTECH-267947

PATIENT
  Sex: Male
  Weight: 62 kg

DRUGS (10)
  1. OMALIZUMAB [Suspect]
     Indication: ASTHMA
     Dosage: 375 MG, Q2W
     Route: 058
     Dates: start: 20080721
  2. OMALIZUMAB [Suspect]
     Dosage: 375 MG, Q2W
     Dates: start: 20091019
  3. OMALIZUMAB [Suspect]
     Dosage: UNK
  4. OMALIZUMAB [Suspect]
     Dosage: 375 MG, Q2W
     Route: 058
     Dates: start: 20091130
  5. OMALIZUMAB [Suspect]
     Dosage: 375 MG, Q2W
     Route: 058
     Dates: start: 20100208
  6. NOVOTRIMEL [Concomitant]
     Indication: DRUG USE FOR UNKNOWN INDICATION
     Dosage: UNK
     Dates: end: 20080101
  7. TOBRAMYCIN [Concomitant]
     Indication: DRUG USE FOR UNKNOWN INDICATION
     Dosage: UNK
     Dates: end: 20080101
  8. PULMOZYME [Concomitant]
     Indication: DRUG USE FOR UNKNOWN INDICATION
  9. ADVAIR DISKUS 100/50 [Concomitant]
     Indication: DRUG USE FOR UNKNOWN INDICATION
     Dosage: UNK
     Dates: end: 20080101
  10. PREDNISONE [Concomitant]
     Indication: DRUG USE FOR UNKNOWN INDICATION

REACTIONS (10)
  - ASPERGILLOSIS [None]
  - BLOOD PRESSURE ABNORMAL [None]
  - COUGH [None]
  - HEART RATE INCREASED [None]
  - INCREASED BRONCHIAL SECRETION [None]
  - NASAL CONGESTION [None]
  - OROPHARYNGEAL PAIN [None]
  - RESPIRATORY DISORDER [None]
  - RESPIRATORY TRACT INFECTION [None]
  - SPIROMETRY [None]
